FAERS Safety Report 9028173 (Version 1)
Quarter: 2013Q1

REPORT INFORMATION
  Report Type: Spontaneous
  Country: US (occurrence: None)
  Receive Date: 20130115
  Receipt Date: 20130115
  Transmission Date: 20140127
  Serious: Yes (Life-Threatening)
  Sender: FDA-Public Use
  Company Number: None

PATIENT
  Age: 40 Year
  Sex: Female
  Weight: 86.18 kg

DRUGS (1)
  1. LISINOPRIL [Suspect]
     Indication: HYPERTENSION
     Route: 048
     Dates: start: 20090610, end: 20130109

REACTIONS (8)
  - Cough [None]
  - Myalgia [None]
  - Arthralgia [None]
  - Paraesthesia [None]
  - Abasia [None]
  - Pain in extremity [None]
  - Pain in extremity [None]
  - Pain in extremity [None]
